FAERS Safety Report 7889854-4 (Version None)
Quarter: 2011Q4

REPORT INFORMATION
  Report Type: 
  Country: None (occurrence: None)
  Receive Date: 20111103
  Receipt Date: 20111025
  Transmission Date: 20120403
  Serious: Yes (Hospitalization)
  Sender: FDA-Public Use
  Company Number: US-GLAXOSMITHKLINE-A0951438A

PATIENT
  Age: 55 Year
  Sex: Male
  Weight: 106.4 kg

DRUGS (17)
  1. FUROSEMIDE [Concomitant]
  2. LACTULOSE [Concomitant]
  3. ARIPIPRAZOLE [Concomitant]
  4. PROPRANOLOL [Concomitant]
  5. REQUIP [Suspect]
     Indication: RESTLESS LEGS SYNDROME
     Dosage: 1.5MG PER DAY
     Route: 048
     Dates: end: 20111008
  6. COMBIVENT [Concomitant]
  7. CITALOPRAM HYDROBROMIDE [Concomitant]
  8. CALCIUM CARBONATE [Concomitant]
  9. CIPRO [Concomitant]
  10. HYDROXINE [Concomitant]
  11. BLINDED STUDY MEDICATION [Suspect]
  12. RIFAXIMIN [Concomitant]
  13. POTASSIUM CHLORIDE [Concomitant]
  14. LITHIUM CARBONATE [Concomitant]
  15. AMITRIPTYLINE HCL [Concomitant]
  16. ZINC SULFATE [Concomitant]
  17. LEVOTHYROXINE SODIUM [Concomitant]

REACTIONS (12)
  - HALLUCINATION, VISUAL [None]
  - INSOMNIA [None]
  - HALLUCINATION, AUDITORY [None]
  - LETHARGY [None]
  - INCOHERENT [None]
  - AGGRESSION [None]
  - ASTERIXIS [None]
  - ACUTE PSYCHOSIS [None]
  - DISORIENTATION [None]
  - CONFUSIONAL STATE [None]
  - ABNORMAL BEHAVIOUR [None]
  - HEPATIC ENCEPHALOPATHY [None]
